FAERS Safety Report 6269708-X (Version None)
Quarter: 2009Q3

REPORT INFORMATION
  Report Type: 
  Country: None (occurrence: None)
  Receive Date: 20090716
  Receipt Date: 20090709
  Transmission Date: 20100115
  Serious: Yes (Death, Life-Threatening, Hospitalization)
  Sender: FDA-Public Use
  Company Number: DE-ELI_LILLY_AND_COMPANY-DE200902003576

PATIENT
  Sex: Male
  Weight: 50 kg

DRUGS (11)
  1. PEMETREXED [Suspect]
     Indication: NON-SMALL CELL LUNG CANCER
     Dosage: 500 MG/M2 EVERY 3 WEEKS
     Route: 065
     Dates: start: 20090202
  2. PEMETREXED [Suspect]
     Dosage: 600 MG, UNKNOWN
     Dates: start: 20090305
  3. TARCEVA [Suspect]
     Indication: NON-SMALL CELL LUNG CANCER
     Dosage: 150 MG, DAILY (1/D)
     Route: 065
     Dates: start: 20090202, end: 20090219
  4. FOLIC ACID [Concomitant]
     Indication: SUPPLEMENTATION THERAPY
     Dosage: 0.4 MG X2
     Route: 048
     Dates: start: 20090213
  5. VITAMIN B-12 [Concomitant]
     Indication: SUPPLEMENTATION THERAPY
     Dosage: 1000 UG, DAILY (1/D)
     Route: 042
     Dates: start: 20090116
  6. CODEINUM [Concomitant]
     Dosage: 20 D/F, DAILY (1/D)
  7. METAMIZOLE [Concomitant]
     Dosage: 30 D/F X 4
     Route: 065
  8. PREDNISOLONE [Concomitant]
     Dosage: 25 MG, DAILY (1/D)
     Dates: start: 20090205, end: 20090211
  9. PREDNISOLONE [Concomitant]
     Dosage: 100 MG, OTHER
     Route: 042
     Dates: start: 20090216, end: 20090216
  10. PREDNISOLONE [Concomitant]
     Dosage: 50 MG, OTHER
     Route: 042
     Dates: start: 20090217, end: 20090217
  11. PREDNISOLONE [Concomitant]
     Dosage: 40 MG, UNKNOWN
     Route: 048
     Dates: start: 20090218

REACTIONS (5)
  - DYSPNOEA [None]
  - MALIGNANT NEOPLASM PROGRESSION [None]
  - PNEUMONIA [None]
  - POLYNEUROPATHY [None]
  - PYREXIA [None]
